FAERS Safety Report 13405445 (Version 3)
Quarter: 2017Q3

REPORT INFORMATION
  Report Type: Spontaneous
  Country: US (occurrence: US)
  Receive Date: 20170405
  Receipt Date: 20170804
  Transmission Date: 20171127
  Serious: No
  Sender: FDA-Public Use
  Company Number: US-PFIZER INC-2017011873

PATIENT
  Age: 66 Year
  Sex: Female

DRUGS (35)
  1. FOLIC ACID. [Concomitant]
     Active Substance: FOLIC ACID
     Dosage: UNK
     Dates: start: 2015
  2. DUKES MOUTHWASH [Concomitant]
     Indication: STOMATITIS
     Dosage: UNK UNK, 4X/DAY (TAKE 1-2 TEASPOONS, SWISH, GARGLE, SPIT OR SWALLOW UPTO 4 TIMES DAILY)
     Dates: start: 20161202
  3. VALIUM [Concomitant]
     Active Substance: DIAZEPAM
     Dosage: 5 MG, UNK (TAKE 1 TABLET 1 HOUR PRIOR TO TEST AND MAY REPEAT X 1 AT TIME OF TEST)
     Route: 048
     Dates: start: 20160531
  4. ENALAPRIL MALEATE. [Concomitant]
     Active Substance: ENALAPRIL MALEATE
     Dosage: 10 MG, UNK
     Route: 048
  5. JANUVIA [Concomitant]
     Active Substance: SITAGLIPTIN PHOSPHATE
     Dosage: 100 MG, DAILY
     Route: 048
     Dates: start: 20140415
  6. KETOCONAZOLE. [Concomitant]
     Active Substance: KETOCONAZOLE
     Dosage: UNK, AS NEEDED
     Dates: start: 2016
  7. ZOFRAN [Concomitant]
     Active Substance: ONDANSETRON HYDROCHLORIDE
     Indication: NAUSEA
     Dosage: 8 MG, AS NEEDED (TAKE 1 TABLET EVERY 8 HOURS AS NEEDED)
     Route: 048
     Dates: start: 20161013
  8. ZOFRAN [Concomitant]
     Active Substance: ONDANSETRON HYDROCHLORIDE
     Dosage: UNK UNK, AS NEEDED
     Dates: start: 2015
  9. BIOTIN [Concomitant]
     Active Substance: BIOTIN
     Dosage: 5000 UG, 2X/DAY
     Route: 048
     Dates: start: 2015
  10. KETOCONAZOLE. [Concomitant]
     Active Substance: KETOCONAZOLE
     Dosage: UNK (LATHER ONTO AFFECTED AREA(S) THREE TIMES A WEEK, LEAVE FOR 10 MINUTES, AND RINSE)
     Dates: start: 20160707
  11. BIOTIN [Concomitant]
     Active Substance: BIOTIN
     Dosage: UNK
     Dates: start: 2015
  12. CALTRATE 600+D [Concomitant]
     Dosage: UNK
     Dates: start: 2015
  13. GABAPENTIN. [Concomitant]
     Active Substance: GABAPENTIN
     Dosage: 300 MG, 1X/DAY (TAKE 1 CAPSULE BEDTIME)
     Dates: start: 20160219
  14. FENTANYL. [Concomitant]
     Active Substance: FENTANYL
     Indication: HERPES ZOSTER
     Dosage: UNK (25 MCG/HR TRANSDERMAL PATCH 72 HOUR (APPLY 1 PATCH EVERY 3 DAYS))
     Route: 062
     Dates: start: 20160211
  15. GUAIFENESIN/CODEINE [Concomitant]
     Active Substance: CODEINE PHOSPHATE\GUAIFENESIN
     Indication: COUGH
     Dosage: 5 ML, AS NEEDED (CODEINE PHOSPHATE: 10, GUAIFENESIN: 100MG) (TAKE 5 ML EVERY 4-6 HOURS AS NEEDED)
     Route: 048
     Dates: start: 20161107
  16. METFORMIN HCL [Concomitant]
     Active Substance: METFORMIN HYDROCHLORIDE
     Dosage: UNK
     Dates: start: 1997
  17. METOPROLOL SUCCINATE. [Concomitant]
     Active Substance: METOPROLOL SUCCINATE
     Dosage: UNK
     Dates: start: 1999
  18. FASLODEX [Concomitant]
     Active Substance: FULVESTRANT
     Dosage: UNK
  19. IBRANCE [Suspect]
     Active Substance: PALBOCICLIB
     Indication: BREAST CANCER METASTATIC
     Dosage: 100 MG, DAILY
     Route: 048
     Dates: start: 20161007
  20. ALPRAZOLAM. [Concomitant]
     Active Substance: ALPRAZOLAM
     Indication: POSITRON EMISSION TOMOGRAM ABNORMAL
     Dosage: 0.25 MG, AS NEEDED
     Route: 048
     Dates: start: 20160212
  21. AZOPT [Concomitant]
     Active Substance: BRINZOLAMIDE
     Dosage: 2 GTT, 2X/DAY; (INSTILL 1 DROP INTO BOTH EYES TWICE DAILY)
     Route: 047
  22. CALTRATE 600+D [Concomitant]
     Dosage: 2 DF, DAILY (CALCIUM CARBONATE: 600 MG, COLECALCIFEROL: 800 UNIT)
     Route: 048
     Dates: start: 2015
  23. FOLIC ACID. [Concomitant]
     Active Substance: FOLIC ACID
     Dosage: 4 MG, 1X/DAY
     Route: 048
  24. GLYBURIDE. [Concomitant]
     Active Substance: GLYBURIDE
     Dosage: 5 MG, 2X/DAY
     Route: 048
     Dates: start: 20070815
  25. GLYBURIDE. [Concomitant]
     Active Substance: GLYBURIDE
     Dosage: UNK
     Dates: start: 2003
  26. HYDROCHLOROTHIAZIDE. [Concomitant]
     Active Substance: HYDROCHLOROTHIAZIDE
     Dosage: 25 MG, DAILY
     Route: 048
     Dates: start: 20150811
  27. METOPROLOL SUCCINATE. [Concomitant]
     Active Substance: METOPROLOL SUCCINATE
     Dosage: 25 MG, DAILY
     Route: 048
     Dates: start: 20131101
  28. VITAMIN D [Concomitant]
     Active Substance: CHOLECALCIFEROL
     Dosage: 1000 IU, DAILY
  29. ENALAPRIL MALEATE. [Concomitant]
     Active Substance: ENALAPRIL MALEATE
     Dosage: UNK
  30. DUKES MOUTHWASH [Concomitant]
     Dosage: UNK, 1X/DAY (USED 1X)
     Dates: start: 201610
  31. METFORMIN HCL [Concomitant]
     Active Substance: METFORMIN HYDROCHLORIDE
     Dosage: 1000 MG, 2X/DAY
     Route: 048
     Dates: start: 20070814
  32. VITAMIN D [Concomitant]
     Active Substance: CHOLECALCIFEROL
     Dosage: UNK
     Dates: start: 2015
  33. VALIUM [Concomitant]
     Active Substance: DIAZEPAM
     Dosage: UNK (ONLY USED 1X)
     Dates: start: 201602
  34. FENTANYL. [Concomitant]
     Active Substance: FENTANYL
     Dosage: UNK, 3X/DAY
     Dates: start: 2016
  35. JANUVIA [Concomitant]
     Active Substance: SITAGLIPTIN PHOSPHATE
     Dosage: UNK
     Dates: start: 201305

REACTIONS (3)
  - Eczema [Not Recovered/Not Resolved]
  - Dry skin [Not Recovered/Not Resolved]
  - Pruritus [Not Recovered/Not Resolved]

NARRATIVE: CASE EVENT DATE: 201703
